FAERS Safety Report 6676640-6 (Version None)
Quarter: 2010Q2

REPORT INFORMATION
  Report Type: 
  Country: None (occurrence: None)
  Receive Date: 20100412
  Receipt Date: 20100401
  Transmission Date: 20101027
  Serious: Yes (Hospitalization)
  Sender: FDA-Public Use
  Company Number: PHHY2010BE01035

PATIENT
  Sex: Male

DRUGS (8)
  1. LEPONEX [Suspect]
     Indication: PSYCHOTIC DISORDER
     Dosage: 500 MG/DAY
     Dates: end: 20090801
  2. LEPONEX [Interacting]
     Dosage: 600 MG/DAY
  3. SIPRALEXA [Interacting]
     Indication: DEPRESSION
     Dosage: UNK
     Dates: start: 20091001
  4. FLOXYFRAL [Interacting]
     Indication: DEPRESSION
     Dosage: 50 MG, UNK
     Dates: start: 20091201
  5. TELZIR [Concomitant]
     Dosage: 700 MG
  6. TRUVADA [Concomitant]
     Dosage: UNK
  7. NORVIR [Concomitant]
  8. PRAREDUCT [Concomitant]

REACTIONS (7)
  - ABNORMAL BEHAVIOUR [None]
  - ANTIPSYCHOTIC DRUG LEVEL BELOW THERAPEUTIC [None]
  - ANXIETY [None]
  - DEPRESSION [None]
  - DRUG INTERACTION [None]
  - OVERDOSE [None]
  - SUICIDE ATTEMPT [None]
